FAERS Safety Report 22296904 (Version 1)
Quarter: 2023Q2

REPORT INFORMATION
  Report Type: Spontaneous
  Country: US (occurrence: US)
  Receive Date: 20230509
  Receipt Date: 20230509
  Transmission Date: 20230721
  Serious: No
  Sender: FDA-Public Use
  Company Number: US-BIOCON RESEARCH LIMITED-BCN-2023-000329

PATIENT
  Age: 45 Year
  Sex: Male
  Weight: 113.50 kg

DRUGS (1)
  1. EVEROLIMUS [Suspect]
     Active Substance: EVEROLIMUS
     Indication: Hepatic neuroendocrine tumour
     Dosage: ONE TABLET IN A DAY
     Dates: start: 20230213

REACTIONS (3)
  - Accidental exposure to product packaging [Unknown]
  - Product use in unapproved indication [Unknown]
  - No adverse event [Unknown]

NARRATIVE: CASE EVENT DATE: 20230213
